FAERS Safety Report 5378344-9 (Version None)
Quarter: 2007Q3

REPORT INFORMATION
  Report Type: 
  Country: None (occurrence: None)
  Receive Date: 20070702
  Receipt Date: 20070702
  Transmission Date: 20080115
  Serious: No
  Sender: FDA-Public Use
  Company Number: None

PATIENT

DRUGS (1)
  1. COLGATE PREVIDENT 5000 [Suspect]

REACTIONS (4)
  - ARTHRALGIA [None]
  - ENAMEL ANOMALY [None]
  - JOINT CREPITATION [None]
  - TONGUE BLACK HAIRY [None]
